FAERS Safety Report 8806075 (Version 1)
Quarter: 2012Q4

REPORT INFORMATION
  Report Type: Spontaneous
  Country: US (occurrence: None)
  Receive Date: 20120917
  Receipt Date: 20120917
  Transmission Date: 20130627
  Serious: Yes (Hospitalization, Other)
  Sender: FDA-Public Use
  Company Number: DSA_59588_2012

PATIENT
  Sex: Male
  Weight: 94.35 kg

DRUGS (6)
  1. VASOTEC [Suspect]
     Indication: VASCULAR GRAFT
  2. LIPITOR [Suspect]
  3. CARDURA [Suspect]
     Dosage: (DF)
  4. PLAVIX [Suspect]
     Dosage: (DF)
  5. PROSCAR [Suspect]
  6. HYDRODIURIL [Suspect]

REACTIONS (1)
  - Vascular graft [None]
